FAERS Safety Report 22325205 (Version 2)
Quarter: 2023Q2

REPORT INFORMATION
  Report Type: Report from Study
  Country: JP (occurrence: None)
  Receive Date: 20230516
  Receipt Date: 20230523
  Transmission Date: 20230721
  Serious: Yes (Hospitalization)
  Sender: FDA-Public Use
  Company Number: JP-Eisai Medical Research-EC-2023-140001

PATIENT
  Age: 70 Year
  Sex: Female

DRUGS (9)
  1. LENVATINIB [Suspect]
     Active Substance: LENVATINIB
     Indication: Non-small cell lung cancer
     Dosage: STRENGTH: 4MG
     Route: 048
     Dates: start: 20221007, end: 20230507
  2. PEMBROLIZUMAB [Suspect]
     Active Substance: PEMBROLIZUMAB
     Indication: Non-small cell lung cancer
     Dosage: STRENGTH: 100MG/4ML
     Route: 041
     Dates: start: 20221007, end: 20230413
  3. CARBOPLATIN [Suspect]
     Active Substance: CARBOPLATIN
     Indication: Non-small cell lung cancer
     Dosage: FORM: UNKNOWN, STRENGTH: 10MG/ML
     Route: 042
     Dates: start: 20221007, end: 20221208
  4. PEMETREXED [Suspect]
     Active Substance: PEMETREXED
     Indication: Non-small cell lung cancer
     Dosage: FORM: UNKNOWN, STRENGTH: 1MG/ML
     Route: 042
     Dates: start: 20221007, end: 20230413
  5. FRESMIN S [HYDROXOCOBALAMIN] [Concomitant]
     Dosage: 1MG PER MILLILITRE
     Route: 030
     Dates: start: 20220922, end: 20230323
  6. GLYCOPYRRONIUM\INDACATEROL [Concomitant]
     Active Substance: GLYCOPYRRONIUM\INDACATEROL
     Dates: start: 20210623
  7. CALCIUM CARBONATE\CHOLECALCIFEROL\MAGNESIUM CARBONATE [Concomitant]
     Active Substance: CALCIUM CARBONATE\CHOLECALCIFEROL\MAGNESIUM CARBONATE
     Dates: start: 20200804
  8. SENNOSIDES [Concomitant]
     Active Substance: SENNOSIDES
     Dates: start: 20200702
  9. VONOPRAZAN FUMARATE [Concomitant]
     Active Substance: VONOPRAZAN FUMARATE
     Dates: start: 20221012

REACTIONS (2)
  - Proteinuria [Recovered/Resolved]
  - Haematuria [Recovered/Resolved]

NARRATIVE: CASE EVENT DATE: 20230508
